FAERS Safety Report 6433313-2 (Version None)
Quarter: 2009Q4

REPORT INFORMATION
  Report Type: 
  Country: None (occurrence: None)
  Receive Date: 20091109
  Receipt Date: 20091013
  Transmission Date: 20100525
  Serious: Yes (Disabling)
  Sender: FDA-Public Use
  Company Number: PHHY2009CA38967

PATIENT
  Sex: Female

DRUGS (11)
  1. ALISKIREN ALI+ [Suspect]
     Indication: HYPERTENSION
     Dosage: 150 MG
     Route: 048
     Dates: start: 20090528, end: 20090716
  2. LASIX [Concomitant]
     Dosage: 80 MG
     Dates: start: 20090201
  3. LASIX [Concomitant]
     Dosage: 40 MG
  4. DIOVAN [Concomitant]
     Dosage: 80 MG
  5. LIPITOR [Concomitant]
     Dosage: 40 MG
  6. ALLOPURINOL [Concomitant]
     Dosage: 150 MG
  7. GLICLAZIDE [Concomitant]
     Dosage: 60 MG, TID
  8. BISOPROLOL [Concomitant]
     Dosage: 5 MG, TID
  9. PLAVIX [Concomitant]
  10. METFORMIN HCL [Concomitant]
     Dosage: 500 MG, BID
  11. NITROGLYCERIN [Concomitant]
     Dosage: UNK
     Dates: start: 20080701

REACTIONS (2)
  - BLOOD PRESSURE INCREASED [None]
  - RENAL FAILURE ACUTE [None]
